FAERS Safety Report 15277318 (Version 2)
Quarter: 2018Q3

REPORT INFORMATION
  Report Type: Report from Study
  Country: IL (occurrence: IL)
  Receive Date: 20180814
  Receipt Date: 20180822
  Transmission Date: 20181010
  Serious: Yes (Hospitalization, Other)
  Sender: FDA-Public Use
  Company Number: IL-SHIRE-IL201801314

PATIENT

DRUGS (2)
  1. VPRIV [Suspect]
     Active Substance: VELAGLUCERASE ALFA
     Indication: GAUCHER^S DISEASE
     Dosage: 800/1200 UNITS ALTERNATING , 3 VIALS EVERY TWO WEEKS, 1X/2WKS
     Route: 065
     Dates: start: 201002
  2. VITAMIN B12 [Concomitant]
     Active Substance: CYANOCOBALAMIN
     Indication: PRODUCT USED FOR UNKNOWN INDICATION

REACTIONS (4)
  - Puerperal pyrexia [Unknown]
  - Body temperature increased [Unknown]
  - Uterine infection [Unknown]
  - Exposure during pregnancy [Unknown]
